FAERS Safety Report 15654993 (Version 1)
Quarter: 2018Q4

REPORT INFORMATION
  Report Type: Spontaneous
  Country: US (occurrence: US)
  Receive Date: 20181126
  Receipt Date: 20181126
  Transmission Date: 20190205
  Serious: No
  Sender: FDA-Public Use
  Company Number: US-009507513-1811USA001883

PATIENT
  Sex: Female

DRUGS (1)
  1. NEXPLANON [Suspect]
     Active Substance: ETONOGESTREL
     Dosage: 1 ROD (68 MILLIGRAM)
     Route: 059
     Dates: start: 201711

REACTIONS (3)
  - Hot flush [Unknown]
  - Vulvovaginal dryness [Unknown]
  - Loss of libido [Unknown]
